FAERS Safety Report 7245541-7 (Version None)
Quarter: 2011Q1

REPORT INFORMATION
  Report Type: 
  Country: None (occurrence: None)
  Receive Date: 20110118
  Receipt Date: 20110107
  Transmission Date: 20110831
  Serious: Yes (Other)
  Sender: FDA-Public Use
  Company Number: FR-20110003

PATIENT
  Age: 61 Year
  Sex: Male

DRUGS (4)
  1. ASPIRIN [Concomitant]
  2. HEXABRIX [Suspect]
     Indication: ARTERIOGRAM CORONARY
     Dosage: INTRACORONARY
     Route: 022
  3. SIMVASTATIN [Concomitant]
  4. BEPRIDIL (BEPRIDIL) [Suspect]
     Indication: ANGINA PECTORIS
     Dosage: 200 G (200 MG, 1 IN 1 D)

REACTIONS (6)
  - LOSS OF CONSCIOUSNESS [None]
  - ELECTROCARDIOGRAM QT PROLONGED [None]
  - HEART RATE DECREASED [None]
  - TORSADE DE POINTES [None]
  - VENTRICULAR TACHYCARDIA [None]
  - MYOCARDIAL ISCHAEMIA [None]
